FAERS Safety Report 5855759-3 (Version None)
Quarter: 2008Q3

REPORT INFORMATION
  Report Type: 
  Country: None (occurrence: None)
  Receive Date: 20080821
  Receipt Date: 20080821
  Transmission Date: 20090109
  Serious: Yes (Hospitalization)
  Sender: FDA-Public Use
  Company Number: None

PATIENT
  Sex: Male
  Weight: 74.3899 kg

DRUGS (2)
  1. PACLITAXEL [Suspect]
     Indication: NON-SMALL CELL LUNG CANCER
     Dosage: 80MG DAY 1,8, 15 IV
     Route: 042
     Dates: start: 20080812
  2. CARBOPLATIN [Suspect]
     Indication: NON-SMALL CELL LUNG CANCER
     Dosage: 470MG DAY 1 IV
     Route: 042
     Dates: start: 20080729

REACTIONS (2)
  - BLOOD COUNT ABNORMAL [None]
  - HYPOTENSION [None]
